FAERS Safety Report 8576029 (Version 2)
Quarter: 2012Q4

REPORT INFORMATION
  Report Type: 
  Country: US (occurrence: US)
  Receive Date: 20120523
  Receipt Date: 20120912
  Transmission Date: 20130627
  Serious: Yes (Hospitalization)
  Sender: FDA-Public Use
  Company Number: US-GLAXOSMITHKLINE-A0978438A

PATIENT
  Age: 55 Year
  Sex: Female
  Weight: 72.3 kg

DRUGS (9)
  1. PROMACTA [Suspect]
     Indication: PLATELET COUNT DECREASED
     Dosage: 50MG Per day
     Route: 048
     Dates: start: 20110817, end: 20120511
  2. B12 [Concomitant]
     Dosage: 500MCG Twice per day
     Route: 048
  3. FERROUS SULFATE [Concomitant]
     Dosage: 75MG Per day
     Route: 048
  4. TENORMIN [Concomitant]
     Dosage: 50MG Twice per day
     Route: 048
  5. CHOLECALCIFEROL [Concomitant]
     Dosage: 2000IU Per day
     Route: 048
  6. METFORMIN [Concomitant]
     Dosage: 2500MG per day
  7. PRANDIN [Concomitant]
     Dosage: 4MG Three times per day
     Route: 048
  8. LISINOPRIL [Concomitant]
     Dosage: 20MG Per day
     Route: 048
  9. SIMVASTATIN [Concomitant]
     Dosage: 10MG At night
     Route: 048

REACTIONS (4)
  - Pulmonary embolism [Recovered/Resolved]
  - Pulmonary infarction [Unknown]
  - Pleuritic pain [Unknown]
  - Pain in extremity [Unknown]
